FAERS Safety Report 4690572-4 (Version None)
Quarter: 2005Q2

REPORT INFORMATION
  Report Type: 
  Country: None (occurrence: None)
  Receive Date: 20050615
  Receipt Date: 20050224
  Transmission Date: 20051028
  Serious: Yes (Hospitalization)
  Sender: FDA-Public Use
  Company Number: US-AMGEN-KDL117833

PATIENT
  Sex: Male

DRUGS (11)
  1. PROCRIT [Suspect]
     Indication: RENAL FAILURE CHRONIC
     Dates: start: 20040913, end: 20041111
  2. NEXIUM [Concomitant]
  3. EFFEXOR [Concomitant]
  4. ROBAXIN [Concomitant]
  5. NEURONTIN [Concomitant]
  6. PLAVIX [Concomitant]
  7. LIPITOR [Concomitant]
  8. NORVASC [Concomitant]
  9. DESYREL [Concomitant]
  10. TOPROL-XL [Concomitant]
  11. INSULIN [Concomitant]

REACTIONS (5)
  - BLOOD PRESSURE INCREASED [None]
  - DIARRHOEA [None]
  - HAEMOGLOBIN INCREASED [None]
  - NAUSEA [None]
  - VOMITING [None]
